FAERS Safety Report 9478056 (Version 2)
Quarter: 2013Q3

REPORT INFORMATION
  Report Type: Report from Study
  Country: GB (occurrence: GB)
  Receive Date: 20130827
  Receipt Date: 20130827
  Transmission Date: 20140515
  Serious: Yes (Hospitalization)
  Sender: FDA-Public Use
  Company Number: PHHO2009GB13706

PATIENT
  Age: 78 Year
  Sex: Female
  Weight: 94 kg

DRUGS (1)
  1. ALISKIREN [Suspect]
     Indication: CARDIOVASCULAR DISORDER
     Dosage: UNK
     Route: 048
     Dates: start: 20090114, end: 20091022

REACTIONS (5)
  - Pain in extremity [Unknown]
  - Disorientation [Unknown]
  - Concomitant disease progression [Unknown]
  - Hypoaesthesia [Unknown]
  - Mobility decreased [Unknown]
